FAERS Safety Report 7144793-1 (Version None)
Quarter: 2010Q4

REPORT INFORMATION
  Report Type: 
  Country: None (occurrence: None)
  Receive Date: 20101112
  Receipt Date: 20101004
  Transmission Date: 20110411
  Serious: Yes (Other)
  Sender: FDA-Public Use
  Company Number: 1000016619

PATIENT
  Age: 50 Year
  Sex: Female
  Weight: 90.72 kg

DRUGS (12)
  1. SAVELLA [Suspect]
     Indication: FIBROMYALGIA
     Dosage: 12.5 MG (12.5 MG, 2 IN 1 D), ORAL; 25 MG (12.5 MG, 2 IN 1 D), ORAL; 50 MG (25 MG, 2 IN 1 D), ORAL
     Route: 048
     Dates: start: 20091001, end: 20091001
  2. SAVELLA [Suspect]
     Indication: FIBROMYALGIA
     Dosage: 12.5 MG (12.5 MG, 2 IN 1 D), ORAL; 25 MG (12.5 MG, 2 IN 1 D), ORAL; 50 MG (25 MG, 2 IN 1 D), ORAL
     Route: 048
     Dates: start: 20091002, end: 20091003
  3. SAVELLA [Suspect]
     Indication: FIBROMYALGIA
     Dosage: 12.5 MG (12.5 MG, 2 IN 1 D), ORAL; 25 MG (12.5 MG, 2 IN 1 D), ORAL; 50 MG (25 MG, 2 IN 1 D), ORAL
     Route: 048
     Dates: start: 20091004, end: 20091007
  4. SAVELLA [Suspect]
     Indication: FIBROMYALGIA
     Dosage: SEE IMAGE
     Route: 048
     Dates: start: 20091008, end: 20100501
  5. SAVELLA [Suspect]
     Indication: FIBROMYALGIA
     Dosage: SEE IMAGE
     Route: 048
     Dates: start: 20100501, end: 20100501
  6. SAVELLA [Suspect]
     Indication: FIBROMYALGIA
     Dosage: SEE IMAGE
     Route: 048
     Dates: start: 20100501, end: 20100501
  7. SAVELLA [Suspect]
     Indication: FIBROMYALGIA
     Dosage: SEE IMAGE
     Route: 048
     Dates: start: 20100501, end: 20100501
  8. SAVELLA [Suspect]
     Indication: FIBROMYALGIA
     Dosage: 100 MG (50 MG, 2 IN 1 D), ORAL
     Route: 048
     Dates: start: 20100501, end: 20100531
  9. SPIRONOLACTION (SPIRONOLACTONE) (SIPRONOLACTONE) [Concomitant]
  10. OMEPRAZOLE [Concomitant]
  11. AMBIEN CR (ZOLPIDEM TARTRATE) (ZOLPIDEM TARTRATE) [Concomitant]
  12. ZANAFLEX (TIZANIDINE HYDROCHLORIDE) (TIZANIDINE HYDROCHLORIDE) [Concomitant]

REACTIONS (6)
  - CONSTIPATION [None]
  - FEELING HOT [None]
  - FLUSHING [None]
  - HYPERTENSION [None]
  - OEDEMA PERIPHERAL [None]
  - SUICIDAL IDEATION [None]
